FAERS Safety Report 6677347-1 (Version None)
Quarter: 2010Q2

REPORT INFORMATION
  Report Type: 
  Country: None (occurrence: None)
  Receive Date: 20100409
  Receipt Date: 20100409
  Transmission Date: 20101027
  Serious: No
  Sender: FDA-Public Use
  Company Number: None

PATIENT
  Age: 86 Year
  Sex: Female
  Weight: 51.7101 kg

DRUGS (1)
  1. ACTONEL [Suspect]
     Dosage: 1 'S  150 MG ONCE A MONTH
     Dates: start: 20091001

REACTIONS (3)
  - GAIT DISTURBANCE [None]
  - PAIN [None]
  - UNEVALUABLE EVENT [None]
